FAERS Safety Report 20901143 (Version 1)
Quarter: 2022Q2

REPORT INFORMATION
  Report Type: Spontaneous
  Country: FR (occurrence: FR)
  Receive Date: 20220601
  Receipt Date: 20220601
  Transmission Date: 20220720
  Serious: Yes (Hospitalization)
  Sender: FDA-Public Use
  Company Number: None

PATIENT
  Age: 84 Year
  Sex: Female
  Weight: 80 kg

DRUGS (4)
  1. TELMISARTAN [Suspect]
     Active Substance: TELMISARTAN
     Indication: Hypertension
     Dosage: UNIT DOSE : 40 MG , FREQUENCY TIME : 1 DAYS
     Route: 048
     Dates: end: 20211209
  2. INDAPAMIDE [Suspect]
     Active Substance: INDAPAMIDE
     Indication: Hypertension
     Dosage: UNIT DOSE : 1.5 MG, FREQUENCY TIME : 1 DAYS
     Route: 048
     Dates: end: 20211209
  3. ACYCLOVIR [Suspect]
     Active Substance: ACYCLOVIR
     Indication: Meningoencephalitis viral
     Dosage: UNIT DOSE : 10 MG/KG , FREQUENCY TIME : 8 HOURS , DURATION : 15 DAYS
     Route: 042
     Dates: start: 20211204, end: 20211219
  4. KARDEGIC [Suspect]
     Active Substance: ASPIRIN DL-LYSINE
     Indication: Dyslipidaemia
     Dosage: LONG TERM, UNIT DOSE : 75 MG , FREQUENCY TIME 1 DAYS
     Route: 048
     Dates: end: 20211215

REACTIONS (1)
  - Acute kidney injury [Recovered/Resolved]

NARRATIVE: CASE EVENT DATE: 20211210
